FAERS Safety Report 5814174-9 (Version None)
Quarter: 2008Q3

REPORT INFORMATION
  Report Type: 
  Country: None (occurrence: None)
  Receive Date: 20080717
  Receipt Date: 20080710
  Transmission Date: 20090109
  Serious: Yes (Disabling)
  Sender: FDA-Public Use
  Company Number: GB-MERCK-0311GBR00056

PATIENT
  Age: 45 Year
  Sex: Female

DRUGS (3)
  1. ZOCOR [Suspect]
     Indication: TYPE IIA HYPERLIPIDAEMIA
     Route: 048
     Dates: start: 19980101, end: 19990901
  2. ZOCOR [Suspect]
     Route: 048
     Dates: start: 19990901, end: 20000101
  3. [THERAPY UNSPECIFIED] [Concomitant]
     Route: 065

REACTIONS (7)
  - ABASIA [None]
  - CARDIAC DISORDER [None]
  - CONGESTIVE CARDIOMYOPATHY [None]
  - FATIGUE [None]
  - LETHARGY [None]
  - MYOCARDIAL INFARCTION [None]
  - PERIARTHRITIS [None]
